FAERS Safety Report 5000602-8 (Version None)
Quarter: 2006Q2

REPORT INFORMATION
  Report Type: 
  Country: None (occurrence: None)
  Receive Date: 20060501
  Receipt Date: 20060418
  Transmission Date: 20061013
  Serious: Yes (Other)
  Sender: FDA-Public Use
  Company Number: 2006042889

PATIENT
  Age: 55 Year
  Sex: Female

DRUGS (6)
  1. SUTENT [Suspect]
     Indication: RENAL CELL CARCINOMA STAGE UNSPECIFIED
     Dosage: 50 MG
     Dates: start: 20060216
  2. ATENOLOL [Concomitant]
  3. POTASSIUM CHLORIDE [Concomitant]
  4. FERROUS SULFATE TAB [Concomitant]
  5. AMOXICILLIN [Concomitant]
  6. PROCRIT [Concomitant]

REACTIONS (15)
  - ANAEMIA OF CHRONIC DISEASE [None]
  - AZOTAEMIA [None]
  - BLOOD CHLORIDE INCREASED [None]
  - CARBON DIOXIDE DECREASED [None]
  - CHILLS [None]
  - DIALYSIS [None]
  - GLOMERULONEPHRITIS ACUTE [None]
  - HAEMODIALYSIS [None]
  - HYPERSENSITIVITY [None]
  - HYPERTENSION [None]
  - MUSCLE TWITCHING [None]
  - NEPHRITIS INTERSTITIAL [None]
  - OBSTRUCTIVE UROPATHY [None]
  - RENAL CELL CARCINOMA STAGE IV [None]
  - RENAL FAILURE ACUTE [None]
